FAERS Safety Report 24135307 (Version 2)
Quarter: 2024Q3

REPORT INFORMATION
  Report Type: Spontaneous
  Country: KZ (occurrence: KZ)
  Receive Date: 20240725
  Receipt Date: 20240812
  Transmission Date: 20241017
  Serious: Yes (Other)
  Sender: ORGANON
  Company Number: KZ-ORGANON-O2407KAZ001461

PATIENT
  Age: 45 Year
  Sex: Female

DRUGS (1)
  1. DIPROSPAN [Suspect]
     Active Substance: BETAMETHASONE DIPROPIONATE\BETAMETHASONE SODIUM PHOSPHATE
     Dosage: THREE TIMES TO THE LEFT SHOULDER JOINT, EVERY TWO DAYS
     Dates: start: 20240701, end: 20240708

REACTIONS (6)
  - Seizure [Recovering/Resolving]
  - Headache [Unknown]
  - Muscle spasms [Unknown]
  - Dry mouth [Unknown]
  - Thirst [Unknown]
  - Blood glucose increased [Unknown]

NARRATIVE: CASE EVENT DATE: 20240101
